FAERS Safety Report 23806979 (Version 1)
Quarter: 2024Q2

REPORT INFORMATION
  Report Type: Spontaneous
  Country: US (occurrence: US)
  Receive Date: 20240502
  Receipt Date: 20240502
  Transmission Date: 20240716
  Serious: No
  Sender: FDA-Public Use
  Company Number: US-RECKITT BENCKISER HEALTHCARE INT LIMITED-RB-104295-2023

PATIENT
  Age: 95 Year
  Sex: Female
  Weight: 54.55 kg

DRUGS (4)
  1. MUCINEX DM MAXIMUM STRENGTH [Suspect]
     Active Substance: DEXTROMETHORPHAN HYDROBROMIDE\GUAIFENESIN
     Indication: Cough
     Dosage: 4 TABLETS
     Route: 048
     Dates: start: 20230817
  2. CARVEDILOL [Concomitant]
     Active Substance: CARVEDILOL
     Indication: Cardiac failure
     Dosage: 18 MILLIGRAM, QD
     Route: 065
  3. LAMOTRIGINE [Concomitant]
     Active Substance: LAMOTRIGINE
     Indication: Cardiac failure
     Dosage: 12.5 MILLIGRAM, QD
     Route: 065
  4. ASPIRIN [Concomitant]
     Active Substance: ASPIRIN
     Indication: Cardiac failure
     Dosage: 2 DOSAGE FORM, UNK
     Route: 065

REACTIONS (2)
  - Somnolence [Recovered/Resolved]
  - Accidental overdose [Recovered/Resolved]

NARRATIVE: CASE EVENT DATE: 20230817
